FAERS Safety Report 11192556 (Version 1)
Quarter: 2015Q2

REPORT INFORMATION
  Report Type: Spontaneous
  Country: US (occurrence: None)
  Receive Date: 20150612
  Receipt Date: 20150612
  Transmission Date: 20150821
  Serious: Yes (Other)
  Sender: FDA-Public Use
  Company Number: 2015HINSPO0485

PATIENT
  Sex: Female

DRUGS (1)
  1. LEVETIRACETAM (LEVETIRACETAM) TABLET, 500MG [Suspect]
     Active Substance: LEVETIRACETAM
     Indication: PRODUCT USED FOR UNKNOWN INDICATION
     Route: 048
     Dates: start: 20150522, end: 20150528

REACTIONS (5)
  - Abnormal behaviour [None]
  - Hypersensitivity [None]
  - Coordination abnormal [None]
  - Muscle twitching [None]
  - Fatigue [None]

NARRATIVE: CASE EVENT DATE: 20150523
